FAERS Safety Report 10464414 (Version 2)
Quarter: 2014Q3

REPORT INFORMATION
  Report Type: Spontaneous
  Country: CN (occurrence: CN)
  Receive Date: 20140919
  Receipt Date: 20140919
  Transmission Date: 20150326
  Serious: Yes (Hospitalization)
  Sender: FDA-Public Use
  Company Number: PHHY2014CN115098

PATIENT
  Age: 40 Year
  Sex: Male

DRUGS (2)
  1. METRONIDAZOLE. [Suspect]
     Active Substance: METRONIDAZOLE
     Dosage: 1 DF, UNK
     Route: 042
  2. CEPHALOSPORINES [Suspect]
     Active Substance: UNSPECIFIED INGREDIENT
     Indication: UPPER RESPIRATORY TRACT INFECTION
     Route: 042

REACTIONS (18)
  - Chest discomfort [Recovering/Resolving]
  - Electrocardiogram ST segment depression [Recovering/Resolving]
  - Heart rate increased [Recovering/Resolving]
  - Ejection fraction decreased [Recovering/Resolving]
  - Palpitations [Recovering/Resolving]
  - Erythema [Recovering/Resolving]
  - Blood pressure decreased [Recovering/Resolving]
  - Vomiting [Recovering/Resolving]
  - Electrocardiogram ST segment elevation [Recovering/Resolving]
  - Dizziness [Recovering/Resolving]
  - Sinus tachycardia [Recovering/Resolving]
  - Acute myocardial infarction [Recovering/Resolving]
  - Alcohol intolerance [Recovering/Resolving]
  - Blood pressure increased [Recovered/Resolved]
  - Nausea [Recovering/Resolving]
  - Vision blurred [Recovering/Resolving]
  - Electrolyte imbalance [Recovering/Resolving]
  - Cardiogenic shock [Recovering/Resolving]
